FAERS Safety Report 4914114-0 (Version None)
Quarter: 2006Q1

REPORT INFORMATION
  Report Type: 
  Country: None (occurrence: None)
  Receive Date: 20060213
  Receipt Date: 20060131
  Transmission Date: 20060701
  Serious: Yes (Hospitalization)
  Sender: FDA-Public Use
  Company Number: DSK-2006-01107

PATIENT
  Age: 37 Year
  Sex: Female

DRUGS (3)
  1. TARIVID OTIC SOLUTION [Suspect]
     Indication: EAR INFECTION
     Dosage: DROPS
     Route: 001
     Dates: start: 20050816, end: 20050823
  2. TARIVID (OFLOXACIN) (OFLOXACIN) [Suspect]
     Indication: EAR INFECTION
     Route: 048
     Dates: start: 20050816, end: 20050823
  3. PYOSTACINE (PRISTINAMYCIN)(PRISTINAMYCIN) [Suspect]
     Dosage: PER ORAL
     Route: 048
     Dates: start: 20050816, end: 20050831

REACTIONS (4)
  - HEPATITIS ACUTE [None]
  - HEPATITIS E [None]
  - HEPATOCELLULAR DAMAGE [None]
  - RASH PUSTULAR [None]
